APPROVED DRUG PRODUCT: METHYLDOPATE HYDROCHLORIDE
Active Ingredient: METHYLDOPATE HYDROCHLORIDE
Strength: 50MG/ML
Dosage Form/Route: INJECTABLE;INJECTION
Application: A072974 | Product #001
Applicant: TEVA PARENTERAL MEDICINES INC
Approved: Nov 22, 1991 | RLD: No | RS: No | Type: DISCN